FAERS Safety Report 4312245-X (Version None)
Quarter: 2004Q1

REPORT INFORMATION
  Report Type: 
  Country: None (occurrence: None)
  Receive Date: 20040302
  Receipt Date: 20031103
  Transmission Date: 20041129
  Serious: No
  Sender: FDA-Public Use
  Company Number: 200327855BWH

PATIENT
  Sex: Male
  Weight: 34.0198 kg

DRUGS (5)
  1. LEVITRA [Suspect]
     Indication: ERECTILE DYSFUNCTION
     Dosage: 10 MG PRN, ORAL, 20 MG PRN ORAL
     Route: 048
  2. ZOCOR [Concomitant]
  3. ZINAPRIL [Concomitant]
  4. TRIMATRIN [Concomitant]
  5. NORVASC [Concomitant]

REACTIONS (1)
  - ERECTILE DYSFUNCTION [None]
